FAERS Safety Report 9989309 (Version 2)
Quarter: 2014Q1

REPORT INFORMATION
  Report Type: Spontaneous
  Country: US (occurrence: US)
  Receive Date: 20140310
  Receipt Date: 20140310
  Transmission Date: 20141002
  Serious: Yes (Other)
  Sender: FDA-Public Use
  Company Number: US-SA-FABR-1003340

PATIENT
  Age: 31 Year
  Sex: Male

DRUGS (7)
  1. FABRAZYME [Suspect]
     Indication: FABRY^S DISEASE
     Dosage: 90 MG, Q2W
     Route: 042
     Dates: start: 20111107
  2. FABRAZYME [Suspect]
     Indication: FABRY^S DISEASE
     Dosage: 90 MG, Q2W
     Route: 042
     Dates: start: 20111107
  3. AMLODIPINE [Concomitant]
     Indication: HYPERTENSION
     Dosage: 1 DF, QD
     Route: 065
     Dates: start: 2010
  4. CALCIUM ACETATE [Concomitant]
     Dosage: 1334 MG, TID
     Route: 048
     Dates: start: 2012
  5. COLECALCIFEROL [Concomitant]
     Indication: VITAMIN D DEFICIENCY
     Dosage: 2000 IU, QD
     Route: 048
     Dates: start: 2010
  6. METOPROLOL [Concomitant]
     Indication: HYPERTENSION
     Dosage: 300 MG, QD
     Route: 065
     Dates: start: 2011
  7. SODIUM BICARBONATE [Concomitant]
     Dosage: 650 MG, QD
     Route: 065
     Dates: start: 2012

REACTIONS (1)
  - Infusion site extravasation [Recovered/Resolved]
